FAERS Safety Report 5141051-1 (Version None)
Quarter: 2006Q4

REPORT INFORMATION
  Report Type: 
  Country: None (occurrence: None)
  Receive Date: 20061026
  Receipt Date: 20060911
  Transmission Date: 20070319
  Serious: Yes (Other)
  Sender: FDA-Public Use
  Company Number: CHNY2006DE02858

PATIENT
  Sex: Female

DRUGS (1)
  1. NICOTINELL TTS (NCH) (NICOTINE) TRANS-THERAPEUTIC-SYSTEM [Suspect]
     Dosage: TRANSDERMAL
     Route: 062

REACTIONS (3)
  - CARDIOVASCULAR DISORDER [None]
  - HALLUCINATION [None]
  - INSOMNIA [None]
